FAERS Safety Report 5449408-6 (Version None)
Quarter: 2007Q3

REPORT INFORMATION
  Report Type: 
  Country: None (occurrence: None)
  Receive Date: 20070911
  Receipt Date: 20070906
  Transmission Date: 20080115
  Serious: Yes (Life-Threatening, Hospitalization)
  Sender: FDA-Public Use
  Company Number: FR-MERCK-0709FRA00016

PATIENT
  Age: 60 Year
  Sex: Male
  Weight: 96 kg

DRUGS (16)
  1. COZAAR [Concomitant]
     Indication: HYPERTENSION
     Route: 048
  2. ALLOPURINOL [Concomitant]
     Route: 048
  3. EPOETIN BETA [Concomitant]
     Route: 051
  4. NICORANDIL [Concomitant]
     Route: 048
  5. FERROUS SULFATE [Concomitant]
     Route: 048
  6. CLOPIDOGREL BISULFATE [Concomitant]
     Route: 048
  7. AMLODIPINE BESYLATE [Concomitant]
     Indication: HYPERTENSION
     Route: 048
  8. ASPIRIN LYSINE [Concomitant]
     Route: 048
  9. CALCITRIOL [Concomitant]
     Route: 048
  10. FUROSEMIDE [Concomitant]
     Route: 048
  11. MYCOPHENOLATE MOFETIL [Concomitant]
     Route: 051
  12. CALCIUM (UNSPECIFIED) [Concomitant]
     Route: 048
  13. VYTORIN [Suspect]
     Indication: DYSLIPIDAEMIA
     Route: 048
     Dates: start: 20070601, end: 20070702
  14. CYCLOSPORINE [Suspect]
     Indication: PROPHYLAXIS AGAINST TRANSPLANT REJECTION
     Route: 048
  15. SODIUM POLYSTYRENE SULFONATE [Concomitant]
     Route: 048
  16. SODIUM BICARBONATE [Concomitant]
     Route: 048

REACTIONS (6)
  - BLOOD CREATINE PHOSPHOKINASE INCREASED [None]
  - DRUG INTERACTION [None]
  - HYPERKALAEMIA [None]
  - MYALGIA [None]
  - MYOGLOBIN BLOOD PRESENT [None]
  - RHABDOMYOLYSIS [None]
